FAERS Safety Report 5195801-9 (Version None)
Quarter: 2007Q1

REPORT INFORMATION
  Report Type: 
  Country: None (occurrence: None)
  Receive Date: 20070102
  Receipt Date: 20061221
  Transmission Date: 20070707
  Serious: Yes (Death)
  Sender: FDA-Public Use
  Company Number: JP-ROCHE-476409

PATIENT
  Age: 72 Year
  Sex: Female

DRUGS (5)
  1. PEGASYS [Suspect]
     Route: 058
     Dates: start: 20060410, end: 20061023
  2. URSO [Concomitant]
     Route: 048
     Dates: start: 20050512, end: 20061023
  3. COMELIAN [Concomitant]
     Route: 048
     Dates: start: 20050512, end: 20061023
  4. FRANDOL [Concomitant]
     Dosage: FORM REPORTED AS TAPE.
     Route: 061
     Dates: start: 20050512, end: 20061023
  5. KETOPROFEN [Concomitant]
     Route: 061
     Dates: start: 20050512, end: 20061023

REACTIONS (1)
  - BRAIN STEM HAEMORRHAGE [None]
